FAERS Safety Report 5257256-5 (Version None)
Quarter: 2007Q1

REPORT INFORMATION
  Report Type: 
  Country: None (occurrence: None)
  Receive Date: 20070302
  Receipt Date: 20070216
  Transmission Date: 20070707
  Serious: Yes (Death)
  Sender: FDA-Public Use
  Company Number: 2007P1000088

PATIENT
  Age: 83 Year
  Sex: Female

DRUGS (2)
  1. RETEPLASE [Suspect]
     Indication: CEREBROVASCULAR ACCIDENT
     Dosage: IART
  2. ABCIXIMAB [Suspect]
     Dosage: SEE IMAGE
     Route: 042

REACTIONS (1)
  - BRAIN OEDEMA [None]
